FAERS Safety Report 6807263-3 (Version None)
Quarter: 2010Q2

REPORT INFORMATION
  Report Type: 
  Country: None (occurrence: None)
  Receive Date: 20100629
  Receipt Date: 20081022
  Transmission Date: 20101027
  Serious: No
  Sender: FDA-Public Use
  Company Number: US-PFIZER INC-2008068013

PATIENT
  Sex: Male
  Weight: 125 kg

DRUGS (14)
  1. VIAGRA [Suspect]
     Indication: ERECTILE DYSFUNCTION
     Dates: start: 20060101
  2. LISINOPRIL [Concomitant]
     Indication: CEREBROVASCULAR ACCIDENT
  3. SIMVASTATIN [Concomitant]
     Indication: CEREBROVASCULAR ACCIDENT
  4. WELLBUTRIN [Concomitant]
  5. PROVIGIL [Concomitant]
  6. LYRICA [Concomitant]
  7. POTASSIUM [Concomitant]
  8. KLOR-CON [Concomitant]
  9. PLAVIX [Concomitant]
  10. XENADRINE RFA-1 [Concomitant]
  11. FUROSEMIDE [Concomitant]
  12. NEXIUM [Concomitant]
  13. VITAMIN E [Concomitant]
  14. VITAMIN C [Concomitant]

REACTIONS (1)
  - DRUG INEFFECTIVE [None]
